FAERS Safety Report 12185753 (Version 2)
Quarter: 2016Q2

REPORT INFORMATION
  Report Type: Report from Study
  Country: US (occurrence: US)
  Receive Date: 20160316
  Receipt Date: 20160404
  Transmission Date: 20160815
  Serious: No
  Sender: FDA-Public Use
  Company Number: US-AMGEN-USASL2016030541

PATIENT
  Age: 55 Year
  Sex: Female

DRUGS (1)
  1. ENBREL [Suspect]
     Active Substance: ETANERCEPT
     Indication: PSORIASIS
     Dosage: UNK UNK, WEEKLY ON WEDNESDAYS
     Route: 065
     Dates: start: 201404

REACTIONS (4)
  - Nasopharyngitis [Recovering/Resolving]
  - Upper respiratory tract infection [Unknown]
  - Ear infection [Unknown]
  - Bronchitis [Unknown]

NARRATIVE: CASE EVENT DATE: 2016
